FAERS Safety Report 17370640 (Version 3)
Quarter: 2020Q3

REPORT INFORMATION
  Report Type: Report from Study
  Country: US (occurrence: US)
  Receive Date: 20200205
  Receipt Date: 20200821
  Transmission Date: 20201102
  Serious: Yes (Hospitalization)
  Sender: FDA-Public Use
  Company Number: US-ACTELION-A-NJ2020-201331

PATIENT
  Sex: Female
  Weight: 71.66 kg

DRUGS (3)
  1. OPSUMIT [Suspect]
     Active Substance: MACITENTAN
     Indication: PULMONARY ARTERIAL HYPERTENSION
     Dosage: 10 MG, QD
     Route: 048
  2. UPTRAVI [Suspect]
     Active Substance: SELEXIPAG
     Indication: PULMONARY ARTERIAL HYPERTENSION
     Dosage: 1600 MCG, BID
     Route: 048
  3. REVATIO [Concomitant]
     Active Substance: SILDENAFIL CITRATE

REACTIONS (10)
  - Rheumatoid arthritis [Unknown]
  - Sinusitis [Unknown]
  - Pain [Unknown]
  - Circulatory collapse [Unknown]
  - Fatigue [Unknown]
  - Immunodeficiency [Unknown]
  - Anaemia [Unknown]
  - Fibromyalgia [Unknown]
  - Syncope [Unknown]
  - Bronchitis [Unknown]
